FAERS Safety Report 10178477 (Version 1)
Quarter: 2014Q2

REPORT INFORMATION
  Report Type: Spontaneous
  Country: CH (occurrence: CH)
  Receive Date: 20140519
  Receipt Date: 20140519
  Transmission Date: 20141212
  Serious: Yes (Hospitalization)
  Sender: FDA-Public Use
  Company Number: CH-JNJFOC-20140504174

PATIENT
  Age: 72 Year
  Sex: Female
  Weight: 56.6 kg

DRUGS (13)
  1. XEPLION [Suspect]
     Indication: SCHIZOPHRENIA, PARANOID TYPE
     Route: 030
     Dates: start: 20140308
  2. FRAGMIN [Suspect]
     Indication: DEEP VEIN THROMBOSIS
     Route: 058
     Dates: start: 201402, end: 20140329
  3. XARELTO [Suspect]
     Indication: DEEP VEIN THROMBOSIS
     Route: 048
     Dates: start: 20140330, end: 20140401
  4. ELTROXIN [Concomitant]
     Indication: HYPOTHYROIDISM
     Route: 048
     Dates: start: 201402
  5. TARGIN [Concomitant]
     Indication: PRODUCT USED FOR UNKNOWN INDICATION
     Dosage: 10/5
     Route: 048
     Dates: start: 201402
  6. AKINETON [Concomitant]
     Indication: PRODUCT USED FOR UNKNOWN INDICATION
     Dosage: 10/5
     Route: 048
  7. PANTOZOL [Concomitant]
     Indication: PRODUCT USED FOR UNKNOWN INDICATION
     Route: 048
  8. GEMZAR [Concomitant]
     Indication: PRODUCT USED FOR UNKNOWN INDICATION
     Dosage: DAY 14 OF CYCLE 1
     Route: 065
     Dates: start: 20140314
  9. GEMZAR [Concomitant]
     Indication: PRODUCT USED FOR UNKNOWN INDICATION
     Dosage: 80 % OF DOSE, 1 ST CYCLE
     Route: 065
     Dates: start: 20140301
  10. GEMZAR [Concomitant]
     Indication: PRODUCT USED FOR UNKNOWN INDICATION
     Dosage: DAY 8 OF CYCLE 1
     Route: 065
     Dates: start: 20140308
  11. GEMZAR [Concomitant]
     Indication: PRODUCT USED FOR UNKNOWN INDICATION
     Dosage: DAY 1 OF CYCLE 2 AND DAY 29 OF CYCLE 1
     Route: 065
     Dates: start: 20140328
  12. GEMZAR [Concomitant]
     Indication: PRODUCT USED FOR UNKNOWN INDICATION
     Dosage: DAY 8 OF CYCLE 2
     Route: 065
     Dates: start: 20140404
  13. GEMZAR [Concomitant]
     Indication: PRODUCT USED FOR UNKNOWN INDICATION
     Dosage: DAY 15 OF CYCLE 2
     Route: 065
     Dates: start: 20140411

REACTIONS (2)
  - Metastatic pulmonary embolism [Recovering/Resolving]
  - Dyspnoea exertional [Recovering/Resolving]
